FAERS Safety Report 18663167 (Version 2)
Quarter: 2022Q3

REPORT INFORMATION
  Report Type: Report from Study
  Country: US (occurrence: US)
  Receive Date: 20201224
  Receipt Date: 20220801
  Transmission Date: 20221027
  Serious: Yes (Death, Hospitalization, Other)
  Sender: FDA-Public Use
  Company Number: US-TAKEDA-US201907179

PATIENT
  Age: 75 Year
  Sex: Male

DRUGS (4)
  1. ICATIBANT [Suspect]
     Active Substance: ICATIBANT ACETATE
     Indication: Prophylaxis
     Dosage: 30 MILLIGRAM
     Route: 058
     Dates: start: 20150107
  2. ICATIBANT [Suspect]
     Active Substance: ICATIBANT ACETATE
     Indication: Prophylaxis
     Dosage: 30 MILLIGRAM
     Route: 058
     Dates: start: 20150107
  3. TAKHZYRO [Suspect]
     Active Substance: LANADELUMAB-FLYO
     Indication: Hereditary angioedema
     Dosage: 300 MILLIGRAM, Q2WEEKS
     Route: 058
     Dates: start: 20190215
  4. TAKHZYRO [Suspect]
     Active Substance: LANADELUMAB-FLYO
     Dosage: 300 MILLIGRAM, Q2WEEKS
     Route: 058
     Dates: start: 20190222

REACTIONS (4)
  - Death [Fatal]
  - Peripheral swelling [Recovering/Resolving]
  - Injection site pruritus [Recovered/Resolved]
  - Injection site erythema [Recovered/Resolved]

NARRATIVE: CASE EVENT DATE: 20190215
